FAERS Safety Report 9181671 (Version 1)
Quarter: 2013Q1

REPORT INFORMATION
  Report Type: Spontaneous
  Country: FR (occurrence: FR)
  Receive Date: 20130322
  Receipt Date: 20130322
  Transmission Date: 20140127
  Serious: Yes (Hospitalization, Other)
  Sender: FDA-Public Use
  Company Number: FR-ELI_LILLY_AND_COMPANY-FR201303004613

PATIENT
  Sex: Male

DRUGS (11)
  1. UMULINE [Suspect]
     Indication: TYPE 2 DIABETES MELLITUS
     Dosage: UNK
     Route: 058
     Dates: start: 20120927, end: 20121127
  2. GLUCOPHAGE [Concomitant]
     Dosage: 500 MG, UNKNOWN
     Dates: start: 20121012, end: 20121110
  3. PROZAC [Concomitant]
     Dosage: UNK, UNKNOWN
  4. TAHOR [Concomitant]
     Dosage: 40 MG, UNKNOWN
     Dates: end: 20121205
  5. ATROVENT [Concomitant]
     Dosage: 20 UG, UNK
     Dates: start: 20121020, end: 20121201
  6. DOLIPRANE [Concomitant]
     Dosage: 500 MG, TID
     Dates: start: 20121119, end: 20121206
  7. ATARAX                             /00058401/ [Concomitant]
     Dosage: 25 MG, UNKNOWN
     Dates: start: 20121122, end: 20121202
  8. MIANSERINE [Concomitant]
     Dosage: 10 MG, UNKNOWN
     Dates: start: 20121203, end: 20121205
  9. ECONAZOLE [Concomitant]
     Dosage: UNK, UNKNOWN
     Dates: start: 20121103, end: 20121121
  10. TRANSIPEG [Concomitant]
     Dosage: 5.9 MG, UNKNOWN
     Dates: start: 20121109, end: 20121121
  11. EDUCTYL [Concomitant]
     Dosage: UNK, UNKNOWN

REACTIONS (1)
  - Hepatitis [Recovering/Resolving]
